FAERS Safety Report 8276076-0 (Version None)
Quarter: 2012Q2

REPORT INFORMATION
  Report Type: 
  Country: None (occurrence: None)
  Receive Date: 20120412
  Receipt Date: 20120330
  Transmission Date: 20120825
  Serious: Yes (Hospitalization, Other)
  Sender: FDA-Public Use
  Company Number: JP-ASTRAZENECA-2012SE03380

PATIENT
  Age: 27 Year
  Sex: Female
  Weight: 53.3 kg

DRUGS (15)
  1. ZOLPIDEM [Suspect]
     Indication: AUTONOMIC NERVOUS SYSTEM IMBALANCE
     Route: 048
     Dates: start: 20100101, end: 20111217
  2. 5 % GLUCOSE [Concomitant]
     Indication: VOMITING
     Dates: start: 20110615, end: 20110616
  3. LORAZEPAM [Concomitant]
     Dates: start: 20100101
  4. BLONANSERIN [Concomitant]
     Route: 048
     Dates: start: 20100101
  5. RITODRINE HYDROCHLORIDE [Concomitant]
     Indication: THREATENED LABOUR
     Dates: start: 20111213
  6. KAMIKIHITOU [Concomitant]
     Dates: start: 20100101
  7. ROHYPNOL [Concomitant]
     Dates: start: 20100101
  8. 50% GLUCOSE [Concomitant]
     Indication: VOMITING
     Dates: start: 20110615, end: 20110616
  9. ASCORBIC ACID [Concomitant]
     Indication: VOMITING
     Dates: start: 20110615, end: 20110616
  10. VITAMEDIN [Concomitant]
     Indication: VOMITING
     Dates: start: 20110615, end: 20110616
  11. PHYSIO [Concomitant]
     Indication: VOMITING
     Dates: start: 20110615
  12. SEROQUEL [Suspect]
     Indication: AUTONOMIC NERVOUS SYSTEM IMBALANCE
     Route: 048
     Dates: start: 20110101, end: 20111217
  13. DEPAS [Concomitant]
     Dates: start: 20100101
  14. PRIMPERAN TAB [Suspect]
     Indication: VOMITING
     Dates: start: 20110615, end: 20110616
  15. 5 % GLUCOSE [Concomitant]
     Indication: THREATENED LABOUR
     Dates: start: 20110615, end: 20110616

REACTIONS (4)
  - VOMITING [None]
  - MATERNAL EXPOSURE DURING PREGNANCY [None]
  - THREATENED LABOUR [None]
  - OFF LABEL USE [None]
